FAERS Safety Report 9173352 (Version 1)
Quarter: 2013Q1

REPORT INFORMATION
  Report Type: Spontaneous
  Country: IE (occurrence: None)
  Receive Date: 20130315
  Receipt Date: 20130315
  Transmission Date: 20140127
  Serious: Yes (Other)
  Sender: FDA-Public Use
  Company Number: NSR_01058_2013

PATIENT
  Age: 69 Year
  Sex: Male

DRUGS (1)
  1. TRAMADOL HCL [Suspect]
     Indication: ANALGESIC THERAPY

REACTIONS (5)
  - Disturbance in attention [None]
  - Somnolence [None]
  - Depressed level of consciousness [None]
  - Dizziness [None]
  - Dependence [None]
